FAERS Safety Report 5243847-4 (Version None)
Quarter: 2007Q1

REPORT INFORMATION
  Report Type: 
  Country: None (occurrence: None)
  Receive Date: 20070222
  Receipt Date: 20070212
  Transmission Date: 20070707
  Serious: Yes (Hospitalization)
  Sender: FDA-Public Use
  Company Number: ES-ELI_LILLY_AND_COMPANY-ES200702002447

PATIENT
  Age: 47 Year
  Sex: Female

DRUGS (7)
  1. FORTEO [Suspect]
     Indication: OSTEOPOROSIS
     Dosage: 20 UG, DAILY (1/D)
     Route: 058
     Dates: start: 20061201
  2. MORPHINE [Concomitant]
  3. GENTAMICIN SULFATE [Concomitant]
     Dosage: UNK, 2/D
  4. VITAMIN B-12 [Concomitant]
  5. CALCIUM [Concomitant]
  6. SODIUM BICARBONATE [Concomitant]
     Dosage: UNK, 3/D
  7. CORTISONE ACETATE [Concomitant]
     Indication: ASTHMA

REACTIONS (1)
  - ARTHRITIS INFECTIVE [None]
